FAERS Safety Report 9380043 (Version 1)
Quarter: 2013Q3

REPORT INFORMATION
  Report Type: Spontaneous
  Country: ES (occurrence: ES)
  Receive Date: 20130702
  Receipt Date: 20130702
  Transmission Date: 20140515
  Serious: Yes (Hospitalization)
  Sender: FDA-Public Use
  Company Number: ES-BAYER-2013-077273

PATIENT
  Age: 19 Year
  Sex: Female

DRUGS (3)
  1. ASPIRINA 500 MG COMPRIMIDOS EFERVESCENTES [Suspect]
     Dosage: 1 G, BID
     Route: 048
     Dates: start: 20121122, end: 20121128
  2. NAPROXEN [Suspect]
     Dosage: 500 MG, TID
     Route: 048
     Dates: start: 20121128, end: 20121129
  3. TARDYFERON [Suspect]
     Indication: IRON DEFICIENCY ANAEMIA
     Dosage: 80 MG, QD
     Route: 048
     Dates: start: 20121126, end: 20121129

REACTIONS (1)
  - Haemolytic anaemia [Recovered/Resolved]
